FAERS Safety Report 4666021-9 (Version None)
Quarter: 2005Q2

REPORT INFORMATION
  Report Type: 
  Country: None (occurrence: None)
  Receive Date: 20050519
  Receipt Date: 20050419
  Transmission Date: 20051028
  Serious: Yes (Hospitalization)
  Sender: FDA-Public Use
  Company Number: DE-AMGEN-UK127570

PATIENT
  Sex: Female
  Weight: 71 kg

DRUGS (6)
  1. ARANESP [Suspect]
     Indication: ANAEMIA OF MALIGNANT DISEASE
     Route: 065
     Dates: start: 20050401
  2. NEULASTA [Suspect]
     Indication: CHEMOTHERAPY
     Route: 065
     Dates: start: 20050225, end: 20050324
  3. EPIRUBICIN [Concomitant]
     Route: 065
     Dates: start: 20050204, end: 20050318
  4. CYCLOPHOSPHAMIDE [Concomitant]
     Route: 065
     Dates: start: 20050204, end: 20050318
  5. TAXOL [Concomitant]
     Route: 065
     Dates: start: 20050404
  6. XELODA [Concomitant]
     Route: 065
     Dates: start: 20050404

REACTIONS (5)
  - CARDIOVASCULAR DISORDER [None]
  - ECHOCARDIOGRAM ABNORMAL [None]
  - GENERAL PHYSICAL HEALTH DETERIORATION [None]
  - PULMONARY EMBOLISM [None]
  - TACHYCARDIA [None]
